FAERS Safety Report 15994695 (Version 1)
Quarter: 2019Q1

REPORT INFORMATION
  Report Type: Spontaneous
  Country: US (occurrence: US)
  Receive Date: 20190221
  Receipt Date: 20190221
  Transmission Date: 20190418
  Serious: Yes (Other)
  Sender: FDA-Public Use
  Company Number: None

PATIENT
  Age: 65 Year
  Sex: Male
  Weight: 119.25 kg

DRUGS (9)
  1. AMLODIPINE [Concomitant]
     Active Substance: AMLODIPINE BESYLATE
  2. CHLORTHALIDONE. [Concomitant]
     Active Substance: CHLORTHALIDONE
  3. CLONIDINE. [Concomitant]
     Active Substance: CLONIDINE
  4. CARVEDILOL. [Concomitant]
     Active Substance: CARVEDILOL
  5. COQ10 [Concomitant]
     Active Substance: UBIDECARENONE
  6. EPLERENONE. [Concomitant]
     Active Substance: EPLERENONE
  7. ASPIRIN. [Concomitant]
     Active Substance: ASPIRIN
  8. OZEMPIC [Suspect]
     Active Substance: SEMAGLUTIDE
     Dosage: ?          QUANTITY:1 INJECTION(S);OTHER FREQUENCY:WEEKLY;?
     Route: 058
     Dates: start: 20180720, end: 20190211
  9. BUMETINIDE [Concomitant]
     Active Substance: BUMETANIDE

REACTIONS (1)
  - Thyroid mass [None]

NARRATIVE: CASE EVENT DATE: 20190205
